FAERS Safety Report 9153591 (Version 1)
Quarter: 2013Q1

REPORT INFORMATION
  Report Type: Spontaneous
  Country: US (occurrence: None)
  Receive Date: 20130306
  Receipt Date: 20130306
  Transmission Date: 20140127
  Serious: Yes (Other)
  Sender: FDA-Public Use
  Company Number: None

PATIENT
  Age: 78 Year
  Sex: Male

DRUGS (1)
  1. XTANDI [Suspect]
     Indication: PROSTATE CANCER
     Route: 048
     Dates: start: 20121107, end: 20121122

REACTIONS (7)
  - Arthralgia [None]
  - Arthralgia [None]
  - Headache [None]
  - Abdominal pain upper [None]
  - Back pain [None]
  - Arthralgia [None]
  - Arthralgia [None]
